FAERS Safety Report 7108534-6 (Version None)
Quarter: 2010Q4

REPORT INFORMATION
  Report Type: 
  Country: None (occurrence: None)
  Receive Date: 20101117
  Receipt Date: 20100824
  Transmission Date: 20110411
  Serious: No
  Sender: FDA-Public Use
  Company Number: A0876977A

PATIENT
  Sex: Female

DRUGS (1)
  1. VOTRIENT [Suspect]
     Dosage: 500MG PER DAY
     Route: 048
     Dates: start: 20100601

REACTIONS (10)
  - ALOPECIA [None]
  - DECREASED APPETITE [None]
  - DIARRHOEA [None]
  - DIZZINESS [None]
  - FATIGUE [None]
  - HAIR COLOUR CHANGES [None]
  - HEADACHE [None]
  - MADAROSIS [None]
  - NAUSEA [None]
  - VITREOUS FLOATERS [None]
